FAERS Safety Report 24364886 (Version 1)
Quarter: 2024Q3

REPORT INFORMATION
  Report Type: Spontaneous
  Country: JP (occurrence: JP)
  Receive Date: 20240926
  Receipt Date: 20240926
  Transmission Date: 20241017
  Serious: Yes (Hospitalization)
  Sender: TEVA
  Company Number: JP-TEVA-VS-3246542

PATIENT
  Age: 49 Year
  Sex: Female

DRUGS (1)
  1. LANSOPRAZOLE [Suspect]
     Active Substance: LANSOPRAZOLE
     Indication: Product used for unknown indication
     Dosage: DOSAGE IS UNKNOWN
     Route: 065
     Dates: start: 202302, end: 202303

REACTIONS (1)
  - Toxic epidermal necrolysis [Unknown]
